FAERS Safety Report 16551828 (Version 1)
Quarter: 2019Q3

REPORT INFORMATION
  Report Type: Spontaneous
  Country: US (occurrence: US)
  Receive Date: 20190710
  Receipt Date: 20190710
  Transmission Date: 20191004
  Serious: Yes (Other)
  Sender: FDA-Public Use
  Company Number: US-BAYER-2019-129369

PATIENT
  Age: 63 Year
  Sex: Female

DRUGS (1)
  1. BAYER ASPIRIN [Suspect]
     Active Substance: ASPIRIN
     Dosage: UNK

REACTIONS (4)
  - Rectal haemorrhage [Unknown]
  - Drug hypersensitivity [Unknown]
  - Gastric ulcer [Unknown]
  - Skin haemorrhage [Unknown]
